FAERS Safety Report 16043033 (Version 1)
Quarter: 2019Q1

REPORT INFORMATION
  Report Type: Spontaneous
  Country: US (occurrence: US)
  Receive Date: 20190306
  Receipt Date: 20190306
  Transmission Date: 20190418
  Serious: Yes (Other)
  Sender: FDA-Public Use
  Company Number: US-ASTRAZENECA-2019SE33541

PATIENT
  Sex: Female

DRUGS (5)
  1. LEVAQUIN [Suspect]
     Active Substance: LEVOFLOXACIN
     Route: 065
  2. BUDESONIDE. [Suspect]
     Active Substance: BUDESONIDE
     Route: 055
  3. CELESTONE [Suspect]
     Active Substance: BETAMETHASONE
     Route: 065
  4. DEPO-MEDROL [Suspect]
     Active Substance: METHYLPREDNISOLONE ACETATE
     Route: 065
  5. FORTEO [Suspect]
     Active Substance: TERIPARATIDE
     Route: 065

REACTIONS (10)
  - Apparent death [Unknown]
  - Blood pressure increased [Unknown]
  - Drug hypersensitivity [Unknown]
  - Gastrooesophageal reflux disease [Unknown]
  - Skin reaction [Unknown]
  - Respiratory disorder [Unknown]
  - Gait disturbance [Unknown]
  - Tendonitis [Unknown]
  - Joint swelling [Unknown]
  - Gastrointestinal disorder [Unknown]
